FAERS Safety Report 16991612 (Version 1)
Quarter: 2019Q4

REPORT INFORMATION
  Report Type: Spontaneous
  Country: US (occurrence: US)
  Receive Date: 20191104
  Receipt Date: 20191104
  Transmission Date: 20200122
  Serious: No
  Sender: FDA-Public Use
  Company Number: US-009507513-1910USA015937

PATIENT
  Age: 32 Year
  Sex: Female
  Weight: 54.42 kg

DRUGS (1)
  1. NEXPLANON [Suspect]
     Active Substance: ETONOGESTREL
     Indication: CONTRACEPTION
     Dosage: IMPLANT, LEFT ARM, 3 YEARS
     Route: 059
     Dates: start: 20190521

REACTIONS (6)
  - Dizziness [Not Recovered/Not Resolved]
  - Menorrhagia [Not Recovered/Not Resolved]
  - Nausea [Not Recovered/Not Resolved]
  - Vomiting [Not Recovered/Not Resolved]
  - Amenorrhoea [Not Recovered/Not Resolved]
  - Fatigue [Not Recovered/Not Resolved]
